FAERS Safety Report 25935969 (Version 1)
Quarter: 2025Q4

REPORT INFORMATION
  Report Type: Spontaneous
  Country: US (occurrence: US)
  Receive Date: 20251017
  Receipt Date: 20251017
  Transmission Date: 20260117
  Serious: Yes (Hospitalization, Other)
  Sender: RECKITT BENCKISER
  Company Number: US-INDIVIOR US-INDV-177975-2025

PATIENT

DRUGS (3)
  1. SUBOXONE [Suspect]
     Active Substance: BUPRENORPHINE HYDROCHLORIDE\NALOXONE HYDROCHLORIDE
     Indication: Pain
     Dosage: 16 MILLIGRAM, QD
     Route: 065
     Dates: start: 201808, end: 201901
  2. CYMBALTA [Suspect]
     Active Substance: DULOXETINE HYDROCHLORIDE
     Indication: Product used for unknown indication
     Dosage: 60 MILLIGRAM, QD
     Route: 065
  3. OXYCODONE [Suspect]
     Active Substance: OXYCODONE
     Indication: Pain
     Dosage: 1500 MILLIGRAM (100 TABLETS OF 15 MG)
     Route: 065

REACTIONS (7)
  - Toxic encephalopathy [Unknown]
  - Suicidal ideation [Unknown]
  - Suicide attempt [Unknown]
  - Intentional overdose [Unknown]
  - Pain [Unknown]
  - Off label use [Recovered/Resolved]
  - Anxiety [Unknown]
